FAERS Safety Report 8494138-X (Version None)
Quarter: 2012Q2

REPORT INFORMATION
  Report Type: 
  Country: None (occurrence: None)
  Receive Date: 20120628
  Receipt Date: 20120614
  Transmission Date: 20120825
  Serious: Yes (Other)
  Sender: FDA-Public Use
  Company Number: JP-2012-11424

PATIENT
  Age: 88 Year
  Sex: Male
  Weight: 65 kg

DRUGS (12)
  1. AMARYL [Concomitant]
  2. ALLOPURINOL [Concomitant]
  3. SAMSCA [Suspect]
     Indication: FLUID RETENTION
     Dosage: 15 MILLIGRAM(S), QAM, ORAL
     Route: 048
     Dates: start: 20120106, end: 20120107
  4. JANUVIA [Concomitant]
  5. SIGMART (NICORANDIL) [Concomitant]
  6. MAGIAX (MAGNESIUM OXIDE) [Concomitant]
  7. MICOMBI COMBINATION (HYDROCHLOROTHIAZIDE, TELMISARTAN) [Concomitant]
     Indication: FLUID RETENTION
     Dosage: 15 MG MILLIGRAM(S), QAM, ORAL
     Route: 048
     Dates: start: 20120106, end: 20120107
  8. CARVEDILOL [Concomitant]
  9. ASPIRIN [Concomitant]
  10. ADALAT [Concomitant]
  11. MICOMBI COMBINATION (HYDROCHLOROTHIAZIDE, TELMISARTAN) [Concomitant]
  12. DOXAZOSIN MESYLATE [Concomitant]

REACTIONS (3)
  - ELECTROCARDIOGRAM ST SEGMENT DEPRESSION [None]
  - MIDDLE INSOMNIA [None]
  - CHEST PAIN [None]
